FAERS Safety Report 8553911-X (Version None)
Quarter: 2012Q3

REPORT INFORMATION
  Report Type: 
  Country: None (occurrence: None)
  Receive Date: 20120731
  Receipt Date: 20120726
  Transmission Date: 20120928
  Serious: No
  Sender: FDA-Public Use
  Company Number: GB-AMGEN-GBRCT2011054478

PATIENT
  Age: 30 Year
  Sex: Male

DRUGS (2)
  1. ERGOCALCIFEROL [Concomitant]
     Dosage: UNK UNK, QD
     Route: 048
     Dates: start: 20101118
  2. DENOSUMAB [Suspect]
     Indication: BONE GIANT CELL TUMOUR
     Dosage: 120 MG, Q4WK
     Route: 058
     Dates: start: 20101118

REACTIONS (1)
  - PNEUMOTHORAX [None]
